FAERS Safety Report 6026169-3 (Version None)
Quarter: 2008Q4

REPORT INFORMATION
  Report Type: 
  Country: None (occurrence: None)
  Receive Date: 20081229
  Receipt Date: 20081216
  Transmission Date: 20090506
  Serious: Yes (Life-Threatening)
  Sender: FDA-Public Use
  Company Number: 8040500

PATIENT
  Age: 46 Year
  Sex: Female
  Weight: 67 kg

DRUGS (9)
  1. METHYLPHENIDATE HCL [Suspect]
     Indication: ATTENTION DEFICIT/HYPERACTIVITY DISORDER
     Dosage: 20 MG PO
     Route: 048
     Dates: start: 20081019, end: 20081024
  2. LITHIUM CARBONATE [Concomitant]
  3. ALBUTEROL [Concomitant]
  4. SERETIDE /01420901/ [Concomitant]
  5. LEVOTHYROXINE SODIUM [Concomitant]
  6. TIOTROPIUM BROMIDE [Concomitant]
  7. TRAMADOL HCL [Concomitant]
  8. CETIRIZINE HCL [Concomitant]
  9. ZOPICLONE [Concomitant]

REACTIONS (12)
  - ARTHRALGIA [None]
  - CHILLS [None]
  - HEADACHE [None]
  - HYPERHIDROSIS [None]
  - HYPERPYREXIA [None]
  - JOINT STIFFNESS [None]
  - MUSCULOSKELETAL STIFFNESS [None]
  - MYALGIA [None]
  - NAUSEA [None]
  - NEUROMYOPATHY [None]
  - PYREXIA [None]
  - VOMITING [None]
